FAERS Safety Report 9607632 (Version 1)
Quarter: 2013Q4

REPORT INFORMATION
  Report Type: Report from Study
  Country: BR (occurrence: BR)
  Receive Date: 20131009
  Receipt Date: 20131009
  Transmission Date: 20140711
  Serious: Yes (Other)
  Sender: FDA-Public Use
  Company Number: PHHY2013BR112794

PATIENT
  Sex: Male

DRUGS (2)
  1. EXELON [Suspect]
     Indication: DEMENTIA ALZHEIMER^S TYPE
     Dosage: 1.5 MG, ONCE AT THE MORNING
  2. EXELON [Suspect]
     Dosage: 3 MG, ONCE AT THE MORNING AND ONCE AT NIGHT

REACTIONS (3)
  - Cerebral infarction [Recovering/Resolving]
  - Hunger [Unknown]
  - Headache [Recovering/Resolving]
